FAERS Safety Report 21790737 (Version 1)
Quarter: 2022Q4

REPORT INFORMATION
  Report Type: Spontaneous
  Country: US (occurrence: None)
  Receive Date: 20221227
  Receipt Date: 20221227
  Transmission Date: 20230113
  Serious: Yes (Other)
  Sender: FDA-Public Use
  Company Number: None

PATIENT
  Sex: Female

DRUGS (6)
  1. CAPECITABINE [Suspect]
     Active Substance: CAPECITABINE
     Indication: Product used for unknown indication
     Dosage: FREQUENCY : AS DIRECTED;?
     Route: 048
     Dates: start: 20221130
  2. CAPECITABINE [Suspect]
     Active Substance: CAPECITABINE
     Dosage: FREQUENCY : AS DIRECTED;?
     Route: 048
  3. CALCIUM 500 TAB +D [Concomitant]
  4. CITALOPRAM [Concomitant]
  5. HERCEPTIN [Concomitant]
     Active Substance: TRASTUZUMAB
  6. TUKYSA [Concomitant]
     Active Substance: TUCATINIB

REACTIONS (2)
  - Taste disorder [None]
  - Fatigue [None]
